FAERS Safety Report 9382721 (Version 1)
Quarter: 2013Q3

REPORT INFORMATION
  Report Type: Spontaneous
  Country: DE (occurrence: DE)
  Receive Date: 20130703
  Receipt Date: 20130703
  Transmission Date: 20140515
  Serious: Yes (Other)
  Sender: FDA-Public Use
  Company Number: DE-ASTRAZENECA-2013SE49512

PATIENT
  Age: 907 Month
  Sex: Male
  Weight: 142 kg

DRUGS (1)
  1. SYMBICORT TURBOHALER [Suspect]
     Indication: ASTHMA
     Dosage: 160/4.5 TWO PUFFS TWICE DAILY
     Route: 055
     Dates: start: 201007, end: 201212

REACTIONS (2)
  - Sensation of foreign body [Recovered/Resolved]
  - Throat irritation [Recovered/Resolved]
